FAERS Safety Report 5380774-6 (Version None)
Quarter: 2007Q3

REPORT INFORMATION
  Report Type: 
  Country: None (occurrence: None)
  Receive Date: 20070706
  Receipt Date: 20070703
  Transmission Date: 20080115
  Serious: Yes (Hospitalization)
  Sender: FDA-Public Use
  Company Number: B0454439A

PATIENT
  Age: 69 Year
  Sex: Male
  Weight: 65 kg

DRUGS (5)
  1. VALTREX [Suspect]
     Indication: HERPES ZOSTER
     Dosage: 1000MG PER DAY
     Route: 048
     Dates: start: 20070112, end: 20070114
  2. BLOPRESS [Concomitant]
     Route: 048
  3. FUROSEMIDE [Concomitant]
     Route: 048
  4. OMEPRAL [Concomitant]
     Route: 048
  5. RENAGEL [Concomitant]
     Dosage: 750MG PER DAY
     Route: 048

REACTIONS (6)
  - ABASIA [None]
  - DISORIENTATION [None]
  - ENCEPHALOPATHY [None]
  - HALLUCINATION, VISUAL [None]
  - SOMNOLENCE [None]
  - TREMOR [None]
